FAERS Safety Report 6318424-4 (Version None)
Quarter: 2009Q3

REPORT INFORMATION
  Report Type: 
  Country: None (occurrence: None)
  Receive Date: 20090821
  Receipt Date: 20090625
  Transmission Date: 20100115
  Serious: Yes (Hospitalization)
  Sender: FDA-Public Use
  Company Number: BR-PFIZER INC-2009222279

PATIENT

DRUGS (3)
  1. CELEBRA [Suspect]
     Indication: HEADACHE
     Dosage: UNK
     Dates: start: 20090501, end: 20090501
  2. CITALOPRAM [Concomitant]
     Indication: ANXIETY
     Dosage: 20 MG, 1X/DAY
     Route: 048
     Dates: start: 20060101
  3. YASMIN [Concomitant]
     Indication: CONTRACEPTION
     Dosage: UNK
     Route: 048

REACTIONS (8)
  - ABDOMINAL PAIN [None]
  - ANAPHYLACTIC SHOCK [None]
  - BLOOD PRESSURE DECREASED [None]
  - BODY TEMPERATURE DECREASED [None]
  - CHILLS [None]
  - FORMICATION [None]
  - RASH ERYTHEMATOUS [None]
  - SYNCOPE [None]
